FAERS Safety Report 9365930 (Version 4)
Quarter: 2013Q3

REPORT INFORMATION
  Report Type: Spontaneous
  Country: US (occurrence: US)
  Receive Date: 20130625
  Receipt Date: 20130805
  Transmission Date: 20140515
  Serious: Yes (Other)
  Sender: FDA-Public Use
  Company Number: US-PFIZER INC-2013185368

PATIENT
  Age: 55 Year
  Sex: Female
  Weight: 82.99 kg

DRUGS (10)
  1. PREMARIN [Suspect]
     Indication: VULVOVAGINAL DRYNESS
     Dosage: 0.5 G, 2X/WEEK
     Route: 067
  2. PREMARIN [Suspect]
     Indication: ATROPHIC VULVOVAGINITIS
  3. SIMVASTATIN [Concomitant]
     Dosage: 10 MG 1 TABLET AT BEDTIME, 1X/DAY
  4. SERTRALINE [Concomitant]
     Dosage: 50 MG,1 TAB 1X/DAY
  5. LOSARTAN [Concomitant]
     Dosage: 50 MG, 1X/DAY
  6. PRILOSEC [Concomitant]
     Dosage: 10 MG,1 TABLET 1X/DAY
  7. OXYBUTYNIN CHLORIDE [Concomitant]
     Dosage: 5 MG 1 TAB, 1X/DAY
  8. NAPROXEN [Concomitant]
     Dosage: 500 MG 1 TAB, 1X/DAY
  9. CLOBETASOL [Concomitant]
     Dosage: 0.05 %, 1 APPLICATION, ONCE DAILY AS NEEDED
  10. FLUTICASONE [Concomitant]
     Dosage: 50 MCG/ACTUATION 1 SPRAY, ONCE DAILY TO EACH NOSTRIL
     Route: 045

REACTIONS (6)
  - Uterine polyp [Unknown]
  - Vulvovaginal candidiasis [Unknown]
  - Vulvovaginal burning sensation [Unknown]
  - Fungal infection [Unknown]
  - Flatulence [Unknown]
  - Vulvovaginal pruritus [Unknown]
